FAERS Safety Report 8880172 (Version 1)
Quarter: 2012Q4

REPORT INFORMATION
  Report Type: 
  Country: SE (occurrence: SE)
  Receive Date: 20121101
  Receipt Date: 20121101
  Transmission Date: 20130627
  Serious: Yes (Other)
  Sender: FDA-Public Use
  Company Number: PHHY2012SE096975

PATIENT
  Age: 53 Year
  Sex: Female

DRUGS (6)
  1. SANDIMMUNE [Suspect]
  2. ATG [Concomitant]
  3. MYCOPHENOLATE MOFETIL [Concomitant]
  4. EVEROLIMUS [Concomitant]
  5. CICLOSPORIN A [Concomitant]
  6. TACROLIMUS [Concomitant]

REACTIONS (2)
  - Interstitial lung disease [Not Recovered/Not Resolved]
  - Glomerular filtration rate decreased [Unknown]
